FAERS Safety Report 15308298 (Version 2)
Quarter: 2018Q3

REPORT INFORMATION
  Report Type: Spontaneous
  Country: US (occurrence: US)
  Receive Date: 20180822
  Receipt Date: 20180828
  Transmission Date: 20181010
  Serious: No
  Sender: FDA-Public Use
  Company Number: US-PFIZER INC-2017162435

PATIENT
  Age: 70 Year
  Sex: Female
  Weight: 72 kg

DRUGS (40)
  1. LYRICA [Suspect]
     Active Substance: PREGABALIN
     Indication: FIBROMYALGIA
     Dosage: 150 MG, 3X/DAY
     Route: 048
     Dates: end: 2018
  2. PREDNISONE. [Concomitant]
     Active Substance: PREDNISONE
     Indication: TEMPORAL ARTERITIS
     Dosage: 5 MG, 1X/DAY (TTSU)
     Route: 048
     Dates: start: 20170411
  3. PREDNISONE. [Concomitant]
     Active Substance: PREDNISONE
     Dosage: 5 MG, 1X/DAY (TH)
     Route: 048
     Dates: start: 20170611
  4. PREDNISONE. [Concomitant]
     Active Substance: PREDNISONE
     Dosage: 2.5 MG, DAILY (1/2 TABLET EVERY MORNING)
     Route: 048
     Dates: start: 20170711
  5. CALCIUM 600 + D [Concomitant]
     Active Substance: CALCIUM\VITAMIN D
     Dosage: 1 DF, DAILY
     Route: 048
  6. HYDROCODONE/ACETAMINOPHEN [Concomitant]
     Active Substance: ACETAMINOPHEN\HYDROCODONE
     Indication: BREAKTHROUGH PAIN
     Dosage: 1 DF, AS NEEDED [HYDROCODONE BITARTRATE?10 MG,ACETAMINOPHEN?325 MG/1?2 TABLET ORAL TWO TIMES DAILY]
     Route: 048
  7. KETOROLAC TROMETHAMINE. [Concomitant]
     Active Substance: KETOROLAC TROMETHAMINE
     Dosage: UNK (60/2 MG/ML)
     Route: 030
     Dates: start: 20140428, end: 20140428
  8. KETOROLAC TROMETHAMINE. [Concomitant]
     Active Substance: KETOROLAC TROMETHAMINE
     Dosage: UNK (60/2 MG/ML)
     Route: 030
     Dates: start: 20140502, end: 20140502
  9. PROMETHAZINE HCL [Concomitant]
     Active Substance: PROMETHAZINE HYDROCHLORIDE
     Dosage: UNK (100 MG/ML)
     Route: 030
     Dates: start: 20140507
  10. PREDNISONE. [Concomitant]
     Active Substance: PREDNISONE
     Dosage: 5 MG, 1X/DAY (TH/SU)
     Route: 048
     Dates: start: 20170511
  11. FISH OIL [Concomitant]
     Active Substance: FISH OIL
     Dosage: 1000 MG, DAILY
     Route: 048
  12. TOPIRAMATE. [Concomitant]
     Active Substance: TOPIRAMATE
     Indication: HEADACHE
     Dosage: 75 MG, 2X/DAY (1.5 DF TWICE DAILY)
     Route: 048
  13. FERROUS SULFATE. [Concomitant]
     Active Substance: FERROUS SULFATE
     Indication: ANAEMIA
     Dosage: 325 MG, DAILY (65 FE)
     Route: 048
  14. BIOFLEX [GLUCOSAMINE SULFATE] [Concomitant]
     Dosage: 2 DF, DAILY
     Route: 048
  15. CYCLOBENZAPRINE HCL [Concomitant]
     Active Substance: CYCLOBENZAPRINE HYDROCHLORIDE
     Indication: MUSCLE SPASMS
     Dosage: 5 MG, 1X/DAY (HS)
     Route: 048
  16. DULOXETINE HCL [Concomitant]
     Active Substance: DULOXETINE HYDROCHLORIDE
     Indication: FIBROMYALGIA
     Dosage: 120 MG, DAILY
     Route: 048
  17. TRAZODONE HYDROCHLORIDE. [Concomitant]
     Active Substance: TRAZODONE HYDROCHLORIDE
     Indication: FIBROMYALGIA
  18. HYDROMORPHONE HCL [Concomitant]
     Active Substance: HYDROMORPHONE HYDROCHLORIDE
     Indication: PAIN
     Dosage: 16 MG, AS NEEDED  [1 TABLET (ORAL) TWO TIMES DAILY]
     Route: 048
  19. PROCHLORPERAZINE MALEATE. [Concomitant]
     Active Substance: PROCHLORPERAZINE MALEATE
     Indication: NAUSEA
  20. PROMETHAZINE HCL [Concomitant]
     Active Substance: PROMETHAZINE HYDROCHLORIDE
     Dosage: UNK (25 MG/ML)
     Route: 030
     Dates: start: 20140425
  21. MAGNESIUM OXIDE. [Concomitant]
     Active Substance: MAGNESIUM OXIDE
     Indication: LIMB DISCOMFORT
     Dosage: 400 MG, DAILY
     Route: 048
  22. PREDNISONE. [Concomitant]
     Active Substance: PREDNISONE
     Indication: ARTHRITIS
     Dosage: 2.5 MG, 1X/DAY (MWFSA)
     Route: 048
     Dates: start: 20170411
  23. FLUTICASONE PROPIONATE. [Concomitant]
     Active Substance: FLUTICASONE PROPIONATE
     Indication: HYPERSENSITIVITY
     Dosage: 100 UG, DAILY
     Route: 045
  24. TRAZODONE HYDROCHLORIDE. [Concomitant]
     Active Substance: TRAZODONE HYDROCHLORIDE
     Indication: SLEEP DISORDER
     Dosage: 300 MG, 1X/DAY (AT BEDTIME (1?2 HRS BEFORE))
     Route: 048
  25. KETOROLAC TROMETHAMINE. [Concomitant]
     Active Substance: KETOROLAC TROMETHAMINE
     Indication: MIGRAINE
     Dosage: UNK UNK, AS NEEDED (60/2 MG/ML)
  26. PROCHLORPERAZINE MALEATE. [Concomitant]
     Active Substance: PROCHLORPERAZINE MALEATE
     Indication: MIGRAINE
     Dosage: 30 MG, AS NEEDED (10 MG 3X/DAY)
     Route: 048
  27. PHENERGAN [PROMETHAZINE] [Concomitant]
     Dosage: UNK (25 MG/ML)
     Route: 030
     Dates: start: 20140428
  28. PREDNISONE. [Concomitant]
     Active Substance: PREDNISONE
     Dosage: UNK (2.5 MG 5X/WK)
     Route: 048
     Dates: start: 20170511
  29. PREDNISONE. [Concomitant]
     Active Substance: PREDNISONE
     Dosage: UNK (2.5 MG 6X/WK)
     Route: 048
     Dates: start: 20170611
  30. FERROUS SULFATE. [Concomitant]
     Active Substance: FERROUS SULFATE
     Indication: RESTLESS LEGS SYNDROME
  31. KETOROLAC TROMETHAMINE. [Concomitant]
     Active Substance: KETOROLAC TROMETHAMINE
     Dosage: UNK (60/2 MG/ML)
     Route: 030
     Dates: start: 20140425, end: 20140425
  32. OMEPRAZOLE. [Concomitant]
     Active Substance: OMEPRAZOLE
     Dosage: 20 MG, 2X/DAY
     Route: 048
  33. FLUTICASONE PROPIONATE. [Concomitant]
     Active Substance: FLUTICASONE PROPIONATE
     Indication: SINUSITIS
  34. TOPIRAMATE. [Concomitant]
     Active Substance: TOPIRAMATE
     Indication: WEIGHT DECREASED
     Dosage: 125 MG, 1X/DAY (1.5 DF IN AM AND 1 DF AT NIGHT/WEEK)
     Route: 048
  35. ZOLPIDEM TARTRATE. [Concomitant]
     Active Substance: ZOLPIDEM TARTRATE
     Indication: SLEEP DISORDER
     Dosage: 10 MG, 1X/DAY (AT BEDTIME)
     Route: 048
  36. ALLEGRA [Concomitant]
     Active Substance: FEXOFENADINE HYDROCHLORIDE
     Indication: HYPERSENSITIVITY
     Dosage: 180 MG, AS NEEDED
     Route: 048
  37. KETOROLAC TROMETHAMINE. [Concomitant]
     Active Substance: KETOROLAC TROMETHAMINE
     Dosage: UNK (60/2 MG/ML)
     Route: 030
     Dates: start: 20140508, end: 20140508
  38. PROMETHAZINE HCL [Concomitant]
     Active Substance: PROMETHAZINE HYDROCHLORIDE
     Dosage: UNK (25 MG/ML)
     Route: 030
     Dates: start: 20140502
  39. ESTRACE [Concomitant]
     Active Substance: ESTRADIOL
     Indication: HOT FLUSH
     Dosage: UNK UNK, DAILY (1/2?1 DF)
     Route: 048
  40. KETOROLAC TROMETHAMINE. [Concomitant]
     Active Substance: KETOROLAC TROMETHAMINE
     Dosage: UNK (60/2 MG/ML)
     Route: 030
     Dates: start: 20140507, end: 20140507

REACTIONS (4)
  - Pain in extremity [Unknown]
  - Arthralgia [Unknown]
  - Product use issue [Unknown]
  - Peripheral swelling [Recovered/Resolved]

NARRATIVE: CASE EVENT DATE: 2018
